FAERS Safety Report 24321534 (Version 1)
Quarter: 2024Q3

REPORT INFORMATION
  Report Type: Spontaneous
  Country: NO (occurrence: None)
  Receive Date: 20240916
  Receipt Date: 20240916
  Transmission Date: 20241017
  Serious: Yes (Hospitalization)
  Sender: ORION
  Company Number: None

PATIENT
  Age: 57 Year
  Sex: Male

DRUGS (3)
  1. METHOTREXATE [Suspect]
     Active Substance: METHOTREXATE
     Indication: Psoriatic arthropathy
     Dosage: STRENGTH 2.5 MG
     Dates: start: 20240606, end: 20240729
  2. ENBREL [Concomitant]
     Active Substance: ETANERCEPT
     Dosage: STRENGTH 50 MG
     Dates: start: 20240705
  3. AMLODIPINE [Concomitant]
     Active Substance: AMLODIPINE BESYLATE
     Dosage: STRENGTH 5 MG

REACTIONS (5)
  - Accidental overdose [Recovering/Resolving]
  - Inappropriate schedule of product administration [Recovering/Resolving]
  - Product communication issue [Recovering/Resolving]
  - Ulcer [Unknown]
  - Weight decreased [Unknown]

NARRATIVE: CASE EVENT DATE: 20240706
